FAERS Safety Report 4550757-4 (Version None)
Quarter: 2004Q4

REPORT INFORMATION
  Report Type: 
  Country: None (occurrence: None)
  Receive Date: 20041217
  Receipt Date: 20040920
  Transmission Date: 20050328
  Serious: No
  Sender: FDA-Public Use
  Company Number: 2004-BP-08556BP

PATIENT
  Age: 77 Year
  Sex: Male

DRUGS (7)
  1. SPIRIVA [Suspect]
     Indication: ASTHMA
     Dosage: 18 MCG (18 MCG, 1 IN 1 D), IH
     Route: 055
     Dates: start: 20040601
  2. SPIRIVA [Suspect]
  3. IPRATROPIUM / ALBUTEROL [Concomitant]
  4. PULMICORT [Concomitant]
  5. FORADIL [Concomitant]
  6. NORVASC [Concomitant]
  7. METOPROLOL TARTRATE [Concomitant]

REACTIONS (2)
  - DRUG INEFFECTIVE [None]
  - DRY MOUTH [None]
